FAERS Safety Report 16019402 (Version 1)
Quarter: 2019Q1

REPORT INFORMATION
  Report Type: Spontaneous
  Country: GB (occurrence: GB)
  Receive Date: 20190228
  Receipt Date: 20190228
  Transmission Date: 20190418
  Serious: Yes (Other)
  Sender: FDA-Public Use
  Company Number: GB-TEVA-2019-GB-1017485

PATIENT
  Age: 68 Year
  Sex: Female
  Weight: 82 kg

DRUGS (13)
  1. PIOGLITAZONE. [Suspect]
     Active Substance: PIOGLITAZONE
     Route: 048
     Dates: start: 20180516
  2. DERMOL [Concomitant]
     Active Substance: BENZALKONIUM CHLORIDE\CHLORHEXIDINE HYDROCHLORIDE\ISOPROPYL MYRISTATE\PARAFFIN
     Dosage: USE AS SOAP SUBSTITUTE
     Dates: start: 20181122
  3. MICONAZOLE. [Concomitant]
     Active Substance: MICONAZOLE
     Dosage: 2 DOSAGE FORMS DAILY; TO AFFECTED AREAS FOR UP TO 2 WEEKS
     Dates: start: 20181122
  4. EMPAGLIFLOZIN [Concomitant]
     Active Substance: EMPAGLIFLOZIN
     Dosage: 10 MILLIGRAM DAILY;
     Dates: start: 20181108
  5. LINAGLIPTIN [Concomitant]
     Active Substance: LINAGLIPTIN
     Dosage: 5 MILLIGRAM DAILY;
     Dates: start: 20181109
  6. CLOBETASONE [Concomitant]
     Active Substance: CLOBETASONE
     Dates: start: 20181129
  7. METFORMIN [Concomitant]
     Active Substance: METFORMIN HYDROCHLORIDE
     Dosage: 1 ONCE A DAY FOR A WEEK THEN INCREASE TO 1 TWICE A DAY WITH MEALS.
     Dates: start: 20190124
  8. FLUTIFORM [Concomitant]
     Active Substance: FLUTICASONE PROPIONATE\FORMOTEROL FUMARATE
     Indication: ASTHMA
     Dosage: 4 DOSAGE FORMS DAILY; 50MICROGRAMS/DOSE / 5MICROGRAMS
     Route: 055
     Dates: start: 20181109
  9. BALNEUM PLUS CREAM [Concomitant]
     Indication: DRY SKIN
     Dates: start: 20181122
  10. FUROSEMIDE. [Concomitant]
     Active Substance: FUROSEMIDE
     Dates: start: 20181108
  11. RAMIPRIL. [Concomitant]
     Active Substance: RAMIPRIL
     Dosage: 10 MILLIGRAM DAILY;
     Dates: start: 20181109
  12. AMLODIPINE [Concomitant]
     Active Substance: AMLODIPINE BESYLATE
     Dosage: 5 MILLIGRAM DAILY;
     Dates: start: 20181109
  13. ATORVASTATIN [Concomitant]
     Active Substance: ATORVASTATIN
     Dosage: 20 MILLIGRAM DAILY; NIGHT20
     Dates: start: 20181109

REACTIONS (3)
  - Pericardial effusion [Recovering/Resolving]
  - Cardiac failure [Recovering/Resolving]
  - Dyspnoea [Recovering/Resolving]

NARRATIVE: CASE EVENT DATE: 20181019
